FAERS Safety Report 8465402-5 (Version None)
Quarter: 2012Q2

REPORT INFORMATION
  Report Type: 
  Country: None (occurrence: None)
  Receive Date: 20120626
  Receipt Date: 20120621
  Transmission Date: 20120825
  Serious: Yes (Death, Hospitalization, Other)
  Sender: FDA-Public Use
  Company Number: VE-PFIZER INC-2012141373

PATIENT
  Age: 86 Year
  Sex: Male

DRUGS (4)
  1. LIPITOR [Suspect]
     Dosage: 80 MG, 1X/DAY
     Route: 048
     Dates: start: 20090101
  2. HYDROCHLOROTHIAZIDE [Concomitant]
     Dosage: 12.5 MG, 1X/DAY
     Route: 048
  3. PLAVIX [Concomitant]
     Indication: HYPERTENSION
     Dosage: 75 MG, 1X/DAY
     Route: 048
  4. CADUET [Concomitant]
     Indication: HYPERTENSION
     Dosage: [AMLODIPINE BESILATE 5MG/ ATORVASTATIN CALCIUM 40MG], 1X/DAY
     Route: 048

REACTIONS (2)
  - RESPIRATORY ARREST [None]
  - BACTERIAL INFECTION [None]
